APPROVED DRUG PRODUCT: MACRILEN
Active Ingredient: MACIMORELIN ACETATE
Strength: EQ 60MG BASE/POUCH
Dosage Form/Route: FOR SOLUTION;ORAL
Application: N205598 | Product #001
Applicant: AETERNA ZENTARIS GMBH
Approved: Dec 20, 2017 | RLD: Yes | RS: No | Type: DISCN

PATENTS:
Patent 8192719 | Expires: Oct 12, 2027